FAERS Safety Report 19821311 (Version 1)
Quarter: 2021Q3

REPORT INFORMATION
  Report Type: Spontaneous
  Country: TH (occurrence: TH)
  Receive Date: 20210913
  Receipt Date: 20210913
  Transmission Date: 20211014
  Serious: Yes (Life-Threatening, Hospitalization)
  Sender: FDA-Public Use
  Company Number: TH-TRIS PHARMA, INC.-21TH009874

PATIENT

DRUGS (1)
  1. DYANAVEL XR [Suspect]
     Active Substance: AMPHETAMINE
     Indication: DRUG ABUSE
     Dosage: UNK

REACTIONS (11)
  - Artery dissection [Recovering/Resolving]
  - Carotid artery dissection [Recovering/Resolving]
  - Stenosis [Recovering/Resolving]
  - Cerebrovascular accident [Recovering/Resolving]
  - Drug abuse [Unknown]
  - Neurologic neglect syndrome [Recovering/Resolving]
  - Drug screen positive [Unknown]
  - Cerebral infarction [Recovering/Resolving]
  - Hypertension [Recovering/Resolving]
  - Vasodilatation [Recovering/Resolving]
  - Dysarthria [Recovering/Resolving]
